FAERS Safety Report 12797580 (Version 2)
Quarter: 2016Q4

REPORT INFORMATION
  Report Type: Spontaneous
  Country: ES (occurrence: ES)
  Receive Date: 20160930
  Receipt Date: 20161025
  Transmission Date: 20170207
  Serious: Yes (Death, Hospitalization, Other)
  Sender: FDA-Public Use
  Company Number: PHHY2016ES134542

PATIENT
  Age: 72 Year
  Sex: Male

DRUGS (1)
  1. VOTRIENT [Suspect]
     Active Substance: PAZOPANIB HYDROCHLORIDE
     Indication: RENAL CANCER METASTATIC
     Dosage: 800 MG, QD (800 MG/24 H)
     Route: 065
     Dates: start: 20160802

REACTIONS (11)
  - Respiratory distress [Unknown]
  - Cerebral haemorrhage [Fatal]
  - Gait disturbance [Unknown]
  - Nausea [Unknown]
  - Bradycardia [Unknown]
  - Hypertension [Unknown]
  - Hydrocephalus [Unknown]
  - Haemorrhage intracranial [Unknown]
  - Headache [Unknown]
  - Depressed level of consciousness [Unknown]
  - Haematoma [Unknown]

NARRATIVE: CASE EVENT DATE: 20160806
